FAERS Safety Report 8024716-3 (Version None)
Quarter: 2012Q1

REPORT INFORMATION
  Report Type: 
  Country: None (occurrence: None)
  Receive Date: 20120103
  Receipt Date: 20111221
  Transmission Date: 20120608
  Serious: Yes (Hospitalization, Other)
  Sender: FDA-Public Use
  Company Number: 2011MA017929

PATIENT
  Age: 61 Year
  Sex: Male

DRUGS (1)
  1. METFORMIN HYDROCHLORIDE [Suspect]
     Indication: TYPE 2 DIABETES MELLITUS
     Dosage: 1700 MG;QD

REACTIONS (9)
  - HEPATOTOXICITY [None]
  - CHOLURIA [None]
  - MALAISE [None]
  - DEFICIENCY OF BILE SECRETION [None]
  - CHOLESTASIS [None]
  - GASTROINTESTINAL DISORDER [None]
  - NAUSEA [None]
  - ABDOMINAL DISCOMFORT [None]
  - JAUNDICE [None]
